FAERS Safety Report 4513645-5 (Version None)
Quarter: 2004Q4

REPORT INFORMATION
  Report Type: 
  Country: None (occurrence: None)
  Receive Date: 20041130
  Receipt Date: 20040818
  Transmission Date: 20050328
  Serious: Yes (Life-Threatening, Other)
  Sender: FDA-Public Use
  Company Number: US-GLAXOSMITHKLINE-A0522659A

PATIENT
  Age: 42 Year
  Sex: Female
  Weight: 50 kg

DRUGS (4)
  1. WELLBUTRIN [Suspect]
     Route: 048
     Dates: start: 20040101, end: 20040720
  2. ALCOHOL [Suspect]
  3. ADDERALL 10 [Suspect]
  4. CELEXA [Concomitant]
     Dosage: 60MG PER DAY

REACTIONS (1)
  - GRAND MAL CONVULSION [None]
